FAERS Safety Report 20901730 (Version 1)
Quarter: 2022Q2

REPORT INFORMATION
  Report Type: Spontaneous
  Country: US (occurrence: US)
  Receive Date: 20220601
  Receipt Date: 20220601
  Transmission Date: 20220721
  Serious: No
  Sender: FDA-Public Use
  Company Number: US-PFIZER INC-202200772722

PATIENT
  Age: 75 Year
  Sex: Male
  Weight: 90.72 kg

DRUGS (13)
  1. PAXLOVID [Suspect]
     Active Substance: NIRMATRELVIR\RITONAVIR
     Indication: COVID-19 treatment
     Dosage: UNK
  2. CLORAZEPATE DIPOTASSIUM [Suspect]
     Active Substance: CLORAZEPATE DIPOTASSIUM
     Dosage: UNK
  3. GLIMEPIRIDE [Concomitant]
     Active Substance: GLIMEPIRIDE
     Indication: Diabetes mellitus
     Dosage: 8 MG, 1X/DAY
     Route: 048
  4. METOPROLOL [Concomitant]
     Active Substance: METOPROLOL
     Dosage: 25 MG, 1X/DAY
  5. ASPIRIN [Concomitant]
     Active Substance: ASPIRIN
     Dosage: 325 MG, 1X/DAY
  6. IMDUR [Concomitant]
     Active Substance: ISOSORBIDE MONONITRATE
     Dosage: 60 MG, 1X/DAY
  7. FENOFIBRATE [Concomitant]
     Active Substance: FENOFIBRATE
     Dosage: 160 MG, 1X/DAY
  8. PRAVASTATIN [Concomitant]
     Active Substance: PRAVASTATIN
     Dosage: 20 MG, 1X/DAY
  9. METFORMIN [Concomitant]
     Active Substance: METFORMIN HYDROCHLORIDE
     Dosage: 500 MG, 1X/DAY
  10. FUROSEMIDE [Concomitant]
     Active Substance: FUROSEMIDE
     Dosage: 20 MG, 1X/DAY
  11. ACTOS [Concomitant]
     Active Substance: PIOGLITAZONE HYDROCHLORIDE
     Dosage: 15 MG, 1X/DAY
  12. NITROGLYCERIN [Concomitant]
     Active Substance: NITROGLYCERIN
     Dosage: 0.4 MG, AS NEEDED
  13. CARISOPRODOL [Concomitant]
     Active Substance: CARISOPRODOL
     Dosage: 350 MG, 1X/DAY

REACTIONS (1)
  - Dysgeusia [Unknown]
